FAERS Safety Report 25072159 (Version 2)
Quarter: 2025Q3

REPORT INFORMATION
  Report Type: Spontaneous
  Country: EU (occurrence: EU)
  Receive Date: 20250313
  Receipt Date: 20250930
  Transmission Date: 20251020
  Serious: Yes (Other)
  Sender: IPCA
  Company Number: EU-IPCA LABORATORIES LIMITED-IPC-2025-FR-000566

PATIENT

DRUGS (1)
  1. METFORMIN [Suspect]
     Active Substance: METFORMIN HYDROCHLORIDE
     Indication: Product used for unknown indication
     Route: 065

REACTIONS (4)
  - Lactic acidosis [Unknown]
  - Septic shock [Unknown]
  - Muscle necrosis [Unknown]
  - Hyperlactacidaemia [Unknown]
